FAERS Safety Report 11051043 (Version 1)
Quarter: 2015Q2

REPORT INFORMATION
  Report Type: Spontaneous
  Country: US (occurrence: None)
  Receive Date: 20150420
  Receipt Date: 20150420
  Transmission Date: 20150821
  Serious: Yes (Other)
  Sender: FDA-Public Use
  Company Number: None

PATIENT
  Age: 64 Year

DRUGS (5)
  1. VITAMIN D [Concomitant]
     Active Substance: CHOLECALCIFEROL
  2. ASPIRIN. [Concomitant]
     Active Substance: ASPIRIN
  3. MULTIPLE VITAMIN [Concomitant]
     Active Substance: VITAMINS
  4. PSYLLIUM HUSKS [Concomitant]
  5. CIALIS [Suspect]
     Active Substance: TADALAFIL
     Indication: ERECTILE DYSFUNCTION
     Dosage: ONE PILL, AS NEEDED, TAKEN BY MOUTH
     Route: 048

REACTIONS (1)
  - Deafness unilateral [None]
